FAERS Safety Report 24777522 (Version 3)
Quarter: 2025Q1

REPORT INFORMATION
  Report Type: Spontaneous
  Country: US (occurrence: US)
  Receive Date: 20241226
  Receipt Date: 20250127
  Transmission Date: 20250409
  Serious: No
  Sender: PFIZER
  Company Number: US-PFIZER INC-202400322668

PATIENT
  Age: 68 Year
  Sex: Male

DRUGS (1)
  1. GENOTROPIN [Suspect]
     Active Substance: SOMATROPIN
     Indication: Hypopituitarism
     Dosage: 7 DAYS/WEEK
     Route: 058

REACTIONS (3)
  - Device use issue [Unknown]
  - Drug dose omission by device [Unknown]
  - Device defective [Unknown]

NARRATIVE: CASE EVENT DATE: 20241201
